FAERS Safety Report 4384873-7 (Version None)
Quarter: 2004Q2

REPORT INFORMATION
  Report Type: 
  Country: None (occurrence: None)
  Receive Date: 20040616
  Receipt Date: 20040604
  Transmission Date: 20050107
  Serious: Yes (Hospitalization)
  Sender: FDA-Public Use
  Company Number: 200410231BVD

PATIENT
  Age: 51 Year
  Sex: Female
  Weight: 70 kg

DRUGS (5)
  1. GAMIMUNE N 10% [Suspect]
     Indication: ATAXIA
     Dosage: INTRAVENOUS
     Route: 042
     Dates: start: 20040217, end: 20040221
  2. GAMIMUNE N 10% [Suspect]
     Indication: ATAXIA
     Dosage: INTRAVENOUS
     Route: 042
     Dates: start: 20040217, end: 20040221
  3. GAMIMUNE N 10% [Suspect]
     Indication: ATAXIA
     Dosage: INTRAVENOUS
     Route: 042
     Dates: start: 20040217, end: 20040221
  4. GAMIMUNE N 10% [Suspect]
  5. GAMIMUNE N 10% [Suspect]

REACTIONS (2)
  - HEADACHE [None]
  - PULMONARY EMBOLISM [None]
